FAERS Safety Report 21341083 (Version 1)
Quarter: 2022Q3

REPORT INFORMATION
  Report Type: Spontaneous
  Country: AU (occurrence: AU)
  Receive Date: 20220916
  Receipt Date: 20220916
  Transmission Date: 20221027
  Serious: Yes (Other)
  Sender: FDA-Public Use
  Company Number: AU-ADVANZ PHARMA-202209005586

PATIENT

DRUGS (4)
  1. ZONISAMIDE [Suspect]
     Active Substance: ZONISAMIDE
     Dosage: UNK
  2. CARBAMAZEPINE [Suspect]
     Active Substance: CARBAMAZEPINE
     Dosage: UNK
  3. PERAMPANEL [Suspect]
     Active Substance: PERAMPANEL
     Dosage: UNK
  4. PRIMIDONE [Suspect]
     Active Substance: PRIMIDONE
     Dosage: UNK

REACTIONS (3)
  - Generalised tonic-clonic seizure [Unknown]
  - Focal dyscognitive seizures [Unknown]
  - Drug resistance [Unknown]
